FAERS Safety Report 5262195-X (Version None)
Quarter: 2007Q1

REPORT INFORMATION
  Report Type: 
  Country: None (occurrence: None)
  Receive Date: 20070311
  Receipt Date: 20061030
  Transmission Date: 20070707
  Serious: Yes (Other)
  Sender: FDA-Public Use
  Company Number: 2006UW22418

PATIENT
  Age: 730 Month
  Sex: Male
  Weight: 55.9 kg

DRUGS (4)
  1. SEROQUEL [Suspect]
     Indication: PSYCHOTIC DISORDER
     Dosage: 100-300 MG
     Route: 048
     Dates: start: 20020810, end: 20060609
  2. RISPERDAL [Suspect]
  3. HALDOL [Concomitant]
  4. OTHER PSYCHIATRIC MEDICATION [Concomitant]

REACTIONS (5)
  - BLOOD CHOLESTEROL INCREASED [None]
  - DIABETES MELLITUS [None]
  - DIABETIC KETOACIDOSIS [None]
  - HYPERLIPIDAEMIA [None]
  - UNRESPONSIVE TO STIMULI [None]
